FAERS Safety Report 9842818 (Version 1)
Quarter: 2013Q4

REPORT INFORMATION
  Report Type: Spontaneous
  Country: US (occurrence: None)
  Receive Date: 20131223
  Receipt Date: 20131223
  Transmission Date: 20140711
  Serious: No
  Sender: FDA-Public Use
  Company Number: 221440LEO

PATIENT
  Age: 67 Year
  Sex: Male

DRUGS (1)
  1. PICATO (0.015%, GEL) [Suspect]
     Indication: PRODUCT USED FOR UNKNOWN INDICATION
     Dosage: 1 IN 1 D, TOPICAL
     Route: 061
     Dates: start: 20130426, end: 20130428

REACTIONS (2)
  - Application site discolouration [None]
  - Application site scab [None]
